FAERS Safety Report 6138108-5 (Version None)
Quarter: 2009Q1

REPORT INFORMATION
  Report Type: 
  Country: None (occurrence: None)
  Receive Date: 20090331
  Receipt Date: 20090323
  Transmission Date: 20090719
  Serious: Yes (Other)
  Sender: FDA-Public Use
  Company Number: GB-ASTRAZENECA-2009GB00741

PATIENT
  Age: 68 Year
  Sex: Male

DRUGS (4)
  1. ROSUVASTATIN [Suspect]
     Indication: HYPERLIPIDAEMIA
     Route: 048
     Dates: start: 20090128, end: 20090303
  2. AMLODIPINE BESYLATE [Concomitant]
     Route: 048
     Dates: start: 20051114
  3. OMEPRAZOLE [Concomitant]
     Route: 048
     Dates: start: 20090212
  4. RAMIPRIL [Concomitant]
     Route: 048
     Dates: start: 20060322

REACTIONS (1)
  - TOOTH DISCOLOURATION [None]
